FAERS Safety Report 19270887 (Version 3)
Quarter: 2021Q2

REPORT INFORMATION
  Report Type: Other
  Country: US (occurrence: US)
  Receive Date: 20210518
  Receipt Date: 20210630
  Transmission Date: 20210717
  Serious: Yes (Death)
  Sender: FDA-Public Use
  Company Number: US-ROCHE-2832025

PATIENT
  Age: 75 Year
  Sex: Male

DRUGS (12)
  1. ESBRIET [Suspect]
     Active Substance: PIRFENIDONE
     Indication: PNEUMONIA
     Dosage: 267 MG 3 TIMES DAILY FOR 7 DAYS THEN 534 MG THREE TIMES DAILY 8 TO 14 THEN 801 MG 3 TIMES DAILY
     Route: 048
  2. CITALOPRAM [Concomitant]
     Active Substance: CITALOPRAM HYDROBROMIDE
     Dosage: TAKE 1 TAB BY MOUTH TWICE DAILY
     Route: 048
  3. CYCLOBENZAPRINE. [Concomitant]
     Active Substance: CYCLOBENZAPRINE
     Dosage: TAKE 1 TABLET BY MOUTH THREE TIMES DAILY AS NEEDE.
     Route: 048
  4. PREGABALIN. [Concomitant]
     Active Substance: PREGABALIN
     Route: 048
  5. ESBRIET [Suspect]
     Active Substance: PIRFENIDONE
     Indication: PNEUMONIA
     Dosage: TAKE 3 CAPSULE(S) BY MOUTH 3 TIMES A DAY WITH FOOD
     Route: 048
     Dates: start: 20200103, end: 202104
  6. CARVEDILOL. [Concomitant]
     Active Substance: CARVEDILOL
     Route: 048
  7. PRAVASTATIN. [Concomitant]
     Active Substance: PRAVASTATIN
  8. ASPIRIN. [Concomitant]
     Active Substance: ASPIRIN
     Dosage: TAKE 1 TABLET EVERY DAY ORAL BY MOUTH TWICE DAILY.
     Route: 048
  9. OMEPRAZOLE. [Concomitant]
     Active Substance: OMEPRAZOLE
     Route: 048
  10. OXYCODONE AND ACETAMINOPHEN [Concomitant]
     Active Substance: ACETAMINOPHEN\OXYCODONE HYDROCHLORIDE
     Dosage: TAKE 1 TABLET BY MOUTH TO 3 TIMES DAILY AS NEEDED
     Route: 048
  11. ESBRIET [Suspect]
     Active Substance: PIRFENIDONE
     Indication: INTERSTITIAL LUNG DISEASE
  12. GABAPENTIN. [Concomitant]
     Active Substance: GABAPENTIN
     Dosage: EVERY DAY BY ORAL MOUTH
     Route: 048

REACTIONS (1)
  - Death [Fatal]

NARRATIVE: CASE EVENT DATE: 20210427
